FAERS Safety Report 6783323-0 (Version None)
Quarter: 2010Q2

REPORT INFORMATION
  Report Type: 
  Country: None (occurrence: None)
  Receive Date: 20100617
  Receipt Date: 20100608
  Transmission Date: 20101027
  Serious: Yes (Hospitalization, Other)
  Sender: FDA-Public Use
  Company Number: 2010JP003269

PATIENT
  Age: 2 Year
  Sex: Male
  Weight: 11 kg

DRUGS (16)
  1. PROGRAF [Suspect]
     Indication: BONE MARROW TRANSPLANT
     Dosage: 0.325 MG, CONTINUOUS, IV DRIP
     Route: 041
     Dates: start: 20100224, end: 20100429
  2. PROGRAF [Suspect]
     Indication: BONE MARROW TRANSPLANT
     Dosage: 100 UG, BID, ORAL
     Route: 048
     Dates: start: 20100430
  3. FUNGUARD (MICAFUNGIN) INJECTION [Concomitant]
  4. VICCLOX MEIJI (ACICLOVIR) [Concomitant]
  5. MAXIPIME [Concomitant]
  6. MEROPEN (MEROPENEM TRIHYDRATE) INJECTION [Concomitant]
  7. AMIKACIN [Concomitant]
  8. FRAGMIN [Concomitant]
  9. RECOMODULIN (THROMBOMODULIN ALPHA) INJECTION [Concomitant]
  10. RECOMODULIN (THROMBOMODULIN ALPHA) INJECTION [Concomitant]
  11. NEUPOGEN [Concomitant]
  12. RIVOTRIL (CLONAZEPAM) POWDER [Concomitant]
  13. SINGULAIR [Concomitant]
  14. URSO 250 [Concomitant]
  15. CIPROFLOXACIN HCL [Concomitant]
  16. COTRIM [Concomitant]

REACTIONS (21)
  - BETA 2 MICROGLOBULIN URINE INCREASED [None]
  - BETA-N-ACETYL-D-GLUCOSAMINIDASE INCREASED [None]
  - BLOOD BILIRUBIN UNCONJUGATED INCREASED [None]
  - BLOOD LACTATE DEHYDROGENASE INCREASED [None]
  - BLOOD POTASSIUM INCREASED [None]
  - BLOOD URINE PRESENT [None]
  - DISSEMINATED INTRAVASCULAR COAGULATION [None]
  - FIBRIN D DIMER INCREASED [None]
  - FIBRIN DEGRADATION PRODUCTS INCREASED [None]
  - HAEMOLYSIS [None]
  - HAEMOLYTIC ANAEMIA [None]
  - HYPERTENSION [None]
  - INTERNATIONAL NORMALISED RATIO INCREASED [None]
  - PLATELET COUNT DECREASED [None]
  - PROTEIN URINE PRESENT [None]
  - PROTHROMBIN TIME PROLONGED [None]
  - PULMONARY OEDEMA [None]
  - PULMONARY VASCULAR DISORDER [None]
  - RENAL TUBULAR DISORDER [None]
  - THROMBIN-ANTITHROMBIN III COMPLEX INCREASED [None]
  - THROMBOTIC MICROANGIOPATHY [None]
